FAERS Safety Report 22363518 (Version 3)
Quarter: 2024Q2

REPORT INFORMATION
  Report Type: Report from Study
  Country: US (occurrence: US)
  Receive Date: 20230525
  Receipt Date: 20240416
  Transmission Date: 20240716
  Serious: Yes (Hospitalization, Other)
  Sender: FDA-Public Use
  Company Number: US-ABBVIE-5178509

PATIENT
  Age: 76 Year
  Sex: Female
  Weight: 122 kg

DRUGS (1)
  1. HUMIRA [Suspect]
     Active Substance: ADALIMUMAB
     Indication: Rheumatoid arthritis
     Dosage: CITRATE FREE?FORM STRENGTH WAS 40 MILLIGRAMS
     Route: 058

REACTIONS (10)
  - Diarrhoea [Not Recovered/Not Resolved]
  - Pain in extremity [Recovered/Resolved]
  - Abdominal discomfort [Unknown]
  - Influenza [Recovered/Resolved]
  - Arthralgia [Unknown]
  - Infection [Recovered/Resolved]
  - Muscle spasms [Unknown]
  - Dehydration [Not Recovered/Not Resolved]
  - Nausea [Unknown]
  - Vomiting [Unknown]

NARRATIVE: CASE EVENT DATE: 20240101
